FAERS Safety Report 5032046-7 (Version None)
Quarter: 2006Q2

REPORT INFORMATION
  Report Type: 
  Country: None (occurrence: None)
  Receive Date: 20060619
  Receipt Date: 20060608
  Transmission Date: 20061013
  Serious: Yes (Other)
  Sender: FDA-Public Use
  Company Number: B0427598A

PATIENT
  Age: 32 Year
  Sex: Male

DRUGS (6)
  1. RETROVIR [Suspect]
     Indication: HIV INFECTION
  2. EPIVIR [Suspect]
     Indication: HIV INFECTION
  3. NEVIRAPINE [Suspect]
     Indication: HIV INFECTION
  4. RIFAMPICIN [Concomitant]
  5. CLOFAZIMINE [Concomitant]
  6. CO-TRIMOXAZOLE [Concomitant]

REACTIONS (8)
  - ERYTHEMA [None]
  - ERYTHEMA NODOSUM [None]
  - IMMUNE RECONSTITUTION SYNDROME [None]
  - NEURITIS [None]
  - OEDEMA [None]
  - PAIN OF SKIN [None]
  - PERONEAL NERVE PALSY [None]
  - RASH [None]
